FAERS Safety Report 20908992 (Version 1)
Quarter: 2022Q2

REPORT INFORMATION
  Report Type: Report from Study
  Country: RO (occurrence: RO)
  Receive Date: 20220603
  Receipt Date: 20220603
  Transmission Date: 20220721
  Serious: Yes (Other)
  Sender: FDA-Public Use
  Company Number: RO-GILEAD-2022-0583545

PATIENT
  Age: 33 Year
  Sex: Female
  Weight: 67 kg

DRUGS (2)
  1. SOFOSBUVIR\VELPATASVIR [Suspect]
     Active Substance: SOFOSBUVIR\VELPATASVIR
     Indication: Hepatitis C
     Dosage: UNK
     Route: 065
     Dates: start: 20220513, end: 20220526
  2. SOFOSBUVIR\VELPATASVIR [Suspect]
     Active Substance: SOFOSBUVIR\VELPATASVIR
     Dosage: UNK
     Route: 065
     Dates: start: 20220527

REACTIONS (2)
  - Hepatic cytolysis [Not Recovered/Not Resolved]
  - Transaminases increased [Unknown]
